FAERS Safety Report 6274660-7 (Version None)
Quarter: 2009Q3

REPORT INFORMATION
  Report Type: 
  Country: None (occurrence: None)
  Receive Date: 20090717
  Receipt Date: 20090706
  Transmission Date: 20100115
  Serious: Yes (Hospitalization)
  Sender: FDA-Public Use
  Company Number: 2009AP002632

PATIENT
  Age: 50 Year
  Sex: Female

DRUGS (16)
  1. AMLODIPINE BESYLATE [Suspect]
     Indication: HYPERTENSION
     Dosage: 10 MG; QD; GT
  2. NICARDIPINE HYDROCHLORIDE [Concomitant]
  3. FENTANYL-100 [Concomitant]
  4. PROPOFOL [Concomitant]
  5. FAMOTIDINE [Concomitant]
  6. VANCOMYCIN [Concomitant]
  7. LOSARTAN POTASSIUM [Concomitant]
  8. CLONIDINE [Concomitant]
  9. VERAPAMIL [Concomitant]
  10. VALSARTAN [Concomitant]
  11. METOPROLOL SUCCINATE [Concomitant]
  12. RANITIDINE [Concomitant]
  13. CINACALCET HYDROCHLORIDE [Concomitant]
  14. LABETALOL HCL [Concomitant]
  15. ATROPINE [Concomitant]
  16. EPINEPHRINE [Concomitant]

REACTIONS (9)
  - ANGIOEDEMA [None]
  - CARDIAC ARREST [None]
  - ELECTROMECHANICAL DISSOCIATION [None]
  - HAEMODIALYSIS [None]
  - HAEMORRHAGIC STROKE [None]
  - HYPERTENSIVE EMERGENCY [None]
  - PYREXIA [None]
  - THALAMIC INFARCTION [None]
  - TONGUE OEDEMA [None]
